FAERS Safety Report 6837777-1 (Version None)
Quarter: 2010Q3

REPORT INFORMATION
  Report Type: 
  Country: None (occurrence: None)
  Receive Date: 20100713
  Receipt Date: 20070521
  Transmission Date: 20110219
  Serious: No
  Sender: FDA-Public Use
  Company Number: US-PFIZER INC-2007038007

PATIENT
  Sex: Female
  Weight: 113.63 kg

DRUGS (22)
  1. CHANTIX [Suspect]
     Indication: SMOKING CESSATION THERAPY
     Dates: start: 20070303, end: 20070307
  2. XANAX [Concomitant]
  3. TYLENOL W/ CODEINE [Concomitant]
  4. ACETYLSALICYLIC ACID [Concomitant]
  5. CELEBREX [Concomitant]
  6. CENTRUM SILVER [Concomitant]
  7. CYMBALTA [Concomitant]
  8. DETROL LA [Concomitant]
  9. HUMULIN N [Concomitant]
  10. HUMULIN R [Concomitant]
  11. THYROID TAB [Concomitant]
  12. LOTREL [Concomitant]
  13. MAGNESIUM [Concomitant]
  14. METFORMIN [Concomitant]
  15. NIASPAN [Concomitant]
  16. PLAVIX [Concomitant]
  17. PREMARIN [Concomitant]
  18. SOMA [Concomitant]
  19. SPIRONOLACTONE [Concomitant]
  20. VITAMIN D [Concomitant]
  21. VYTORIN [Concomitant]
  22. ZYRTEC [Concomitant]

REACTIONS (3)
  - BURNING SENSATION [None]
  - HYPERSENSITIVITY [None]
  - PRURITUS [None]
